FAERS Safety Report 7814343-2 (Version None)
Quarter: 2011Q4

REPORT INFORMATION
  Report Type: 
  Country: None (occurrence: None)
  Receive Date: 20111011
  Receipt Date: 20110930
  Transmission Date: 20120403
  Serious: Yes (Hospitalization, Disabling, Other)
  Sender: FDA-Public Use
  Company Number: 2010SP063654

PATIENT
  Age: 36 Year
  Sex: Female
  Weight: 61.2356 kg

DRUGS (4)
  1. NUVARING [Suspect]
     Indication: FUNGAL INFECTION
     Dates: start: 20040701, end: 20041001
  2. NUVARING [Suspect]
     Indication: DYSMENORRHOEA
     Dates: start: 20040701, end: 20041001
  3. NUVARING [Suspect]
     Indication: FUNGAL INFECTION
     Dates: start: 20080801, end: 20081201
  4. NUVARING [Suspect]
     Indication: DYSMENORRHOEA
     Dates: start: 20080801, end: 20081201

REACTIONS (20)
  - FIBROMYALGIA [None]
  - INSOMNIA [None]
  - IRRITABLE BOWEL SYNDROME [None]
  - OEDEMA PERIPHERAL [None]
  - VERTIGO [None]
  - SLEEP DISORDER [None]
  - LYMPHADENOPATHY [None]
  - CEREBELLAR HAEMORRHAGE [None]
  - EPSTEIN-BARR VIRUS INFECTION [None]
  - HYPERCOAGULATION [None]
  - MUSCLE STRAIN [None]
  - MALAISE [None]
  - INFLUENZA LIKE ILLNESS [None]
  - DEPRESSION [None]
  - CEREBRAL HAEMORRHAGE [None]
  - PAIN IN EXTREMITY [None]
  - IMPAIRED WORK ABILITY [None]
  - OVARIAN CYST [None]
  - PULMONARY EMBOLISM [None]
  - MULTIPLE INJURIES [None]
